FAERS Safety Report 9291156 (Version 1)
Quarter: 2013Q2

REPORT INFORMATION
  Report Type: Spontaneous
  Country: FR (occurrence: FR)
  Receive Date: 20130515
  Receipt Date: 20130515
  Transmission Date: 20140414
  Serious: Yes (Death)
  Sender: FDA-Public Use
  Company Number: PHHY2013FR047811

PATIENT
  Age: 64 Year
  Sex: Male

DRUGS (25)
  1. ESIDREX [Suspect]
     Indication: CARDIAC FAILURE
     Dosage: 1 DF (25 MG), UNK
     Route: 048
     Dates: start: 20120430
  2. EFFEXOR [Suspect]
     Indication: DEPRESSION
     Route: 048
     Dates: start: 20110902, end: 20130128
  3. TAHOR [Suspect]
     Indication: ISCHAEMIC HEART DISEASE PROPHYLAXIS
     Route: 048
     Dates: start: 20110710
  4. INSULIN GLARGINE [Concomitant]
     Dosage: UNK UKN, UNK
  5. LEVEMIR [Concomitant]
     Dosage: UNK UKN, UNK
  6. NOVORAPID [Concomitant]
     Dosage: UNK UKN, UNK
  7. METFORMIN [Concomitant]
     Dosage: UNK UKN, UNK
  8. LASILIX SPECIAL//FUROSEMIDE [Concomitant]
     Dosage: UNK UKN, UNK
  9. PREVISCAN [Concomitant]
     Dosage: UNK UKN, UNK
  10. TAREG [Concomitant]
     Dosage: UNK UKN, UNK
  11. CARDENSIEL [Concomitant]
     Dosage: UNK UKN, UNK
  12. IPRATROPIUM [Concomitant]
     Dosage: UNK UKN, UNK
  13. BRICANYL [Concomitant]
     Dosage: UNK UKN, UNK
  14. BUDESONIDE [Concomitant]
     Dosage: UNK UKN, UNK
  15. SPIRIVA [Concomitant]
     Dosage: UNK UKN, UNK
  16. QVAR [Concomitant]
     Dosage: UNK UKN, UNK
  17. AIROMIR [Concomitant]
     Dosage: UNK UKN, UNK
  18. AERIUS [Concomitant]
     Dosage: UNK UKN, UNK
  19. ONBREZ [Concomitant]
     Dosage: UNK UKN, UNK
  20. PANTOPRAZOLE [Concomitant]
     Dosage: UNK UKN, UNK
  21. ALFUZOSIN [Concomitant]
     Dosage: UNK UKN, UNK
  22. ALLOPURINOL [Concomitant]
     Dosage: UNK UKN, UNK
  23. AMYCOR [Concomitant]
     Dosage: UNK UKN, UNK
  24. LYRICA [Concomitant]
     Dosage: UNK UKN, UNK
  25. MIANSERIN [Concomitant]
     Dosage: UNK UKN, UNK

REACTIONS (1)
  - Cholestasis [Fatal]
